FAERS Safety Report 15049026 (Version 4)
Quarter: 2018Q4

REPORT INFORMATION
  Report Type: Report from Study
  Country: JP (occurrence: JP)
  Receive Date: 20180622
  Receipt Date: 20181023
  Transmission Date: 20190204
  Serious: Yes (Death, Life-Threatening, Hospitalization, Other)
  Sender: FDA-Public Use
  Company Number: JP-ACTELION-A-CH2017-153936

PATIENT
  Age: 24 Year
  Sex: Female
  Weight: 37.7 kg

DRUGS (24)
  1. OPSUMIT [Suspect]
     Active Substance: MACITENTAN
     Dosage: 5 UNK, UNK
     Route: 048
  2. UPTRAVI [Suspect]
     Active Substance: SELEXIPAG
     Indication: PULMONARY ARTERIAL HYPERTENSION
     Dosage: 0.2 MG, BID
     Route: 048
     Dates: start: 20171229, end: 20180111
  3. FERROMIA [Concomitant]
     Active Substance: SODIUM FERROUS CITRATE
  4. BIO-THREE [Concomitant]
     Active Substance: HERBALS
     Dosage: 4 UNK, UNK
     Dates: start: 20180111, end: 20180625
  5. GLUCONSAN K [Concomitant]
     Active Substance: POTASSIUM GLUCONATE
     Indication: HYPOKALAEMIA
     Dosage: 9 G, QD
     Dates: start: 20180625, end: 20180625
  6. SAMSCA [Concomitant]
     Active Substance: TOLVAPTAN
     Indication: MITRAL VALVE INCOMPETENCE
     Dosage: 3.75 MG, QD
     Dates: start: 20180426, end: 20180620
  7. OPSUMIT [Suspect]
     Active Substance: MACITENTAN
     Indication: PULMONARY ARTERIAL HYPERTENSION
     Dosage: 10 MG, QD
     Route: 048
     Dates: start: 20160402, end: 20180622
  8. BERASUS [Concomitant]
     Active Substance: BERAPROST SODIUM
  9. FERROUS CITRATE NA [Concomitant]
     Active Substance: SODIUM FERROUS CITRATE
     Indication: IRON DEFICIENCY ANAEMIA
     Dosage: 10 MG, UNK
     Dates: start: 20151126, end: 20180623
  10. FAMOTIDINE. [Concomitant]
     Active Substance: FAMOTIDINE
     Indication: GASTRITIS
     Dosage: 10 MG, UNK
     Dates: start: 20160725, end: 20180611
  11. UPTRAVI [Suspect]
     Active Substance: SELEXIPAG
     Dosage: 0.4 MG, BID
     Route: 048
     Dates: start: 20180112, end: 20180208
  12. UPTRAVI [Suspect]
     Active Substance: SELEXIPAG
     Dosage: 0.6 MG, BID
     Route: 048
     Dates: start: 20180209, end: 20180214
  13. ADCIRCA [Concomitant]
     Active Substance: TADALAFIL
  14. TANATRIL [Concomitant]
     Active Substance: IMIDAPRIL
     Indication: MITRAL VALVE INCOMPETENCE
     Dosage: 5 MG, UNK
     Dates: start: 20140710, end: 20180622
  15. TEPRENONE [Concomitant]
     Active Substance: TEPRENONE
     Indication: GASTRITIS
     Dosage: 150 MG, UNK
     Dates: start: 20160905, end: 20180623
  16. OXYGEN. [Concomitant]
     Active Substance: OXYGEN
  17. TAKECAB [Concomitant]
     Active Substance: VONOPRAZAN FUMURATE
     Indication: GASTRITIS
     Dosage: 20 MG, QD
     Dates: start: 20180622, end: 20180624
  18. UPTRAVI [Suspect]
     Active Substance: SELEXIPAG
     Dosage: 0.4 MG, BID
     Route: 048
     Dates: start: 20180215, end: 20180621
  19. FLUTRAN [Suspect]
     Active Substance: FLUOCINOLONE ACETONIDE
     Indication: MITRAL VALVE INCOMPETENCE
     Dosage: 25 MG, QD
     Route: 048
     Dates: start: 20170928, end: 20180621
  20. SPIRONOLACTON [Concomitant]
     Active Substance: SPIRONOLACTONE
     Indication: MITRAL VALVE INCOMPETENCE
     Dosage: 25 MG, UNK
     Dates: start: 20130926, end: 20180621
  21. ADEMPAS [Suspect]
     Active Substance: RIOCIGUAT
     Indication: PULMONARY ARTERIAL HYPERTENSION
     Dosage: 4 MG, QD
     Route: 048
     Dates: start: 20170824, end: 20180621
  22. VENTAVIS [Concomitant]
     Active Substance: ILOPROST
     Indication: PULMONARY ARTERIAL HYPERTENSION
     Dosage: 60 UNK, UNK
     Dates: start: 20170310, end: 20180605
  23. LUPRAC [Concomitant]
     Active Substance: TORSEMIDE
  24. FUROSEMIDE. [Concomitant]
     Active Substance: FUROSEMIDE
     Indication: MITRAL VALVE INCOMPETENCE
     Dosage: 20 MG, UNK
     Dates: start: 20160917, end: 20180625

REACTIONS (20)
  - Renal failure [Not Recovered/Not Resolved]
  - Melaena [Unknown]
  - Pain in jaw [Recovering/Resolving]
  - Pulmonary arterial hypertension [Fatal]
  - Condition aggravated [Fatal]
  - Oedema [Not Recovered/Not Resolved]
  - Transfusion [Unknown]
  - Haematemesis [Recovering/Resolving]
  - Endoscopy [Unknown]
  - Haemoglobin decreased [Unknown]
  - Pulmonary hypertensive crisis [Fatal]
  - Back pain [Recovered/Resolved]
  - White blood cell count decreased [Not Recovered/Not Resolved]
  - Hypotension [Recovered/Resolved]
  - Diarrhoea [Not Recovered/Not Resolved]
  - Blood pressure decreased [Not Recovered/Not Resolved]
  - Ascites [Not Recovered/Not Resolved]
  - Red blood cell count decreased [Unknown]
  - Anuria [Unknown]
  - Musculoskeletal pain [Recovering/Resolving]

NARRATIVE: CASE EVENT DATE: 20160902
